FAERS Safety Report 9383834 (Version 2)
Quarter: 2013Q3

REPORT INFORMATION
  Report Type: Spontaneous
  Country: IE (occurrence: IE)
  Receive Date: 20130704
  Receipt Date: 20130920
  Transmission Date: 20140515
  Serious: Yes (Death, Other)
  Sender: FDA-Public Use
  Company Number: IE-MERCK-1306IRL013512

PATIENT
  Age: 72 Year
  Sex: Male

DRUGS (6)
  1. JANUVIA [Suspect]
     Indication: TYPE 2 DIABETES MELLITUS
     Dosage: UNK, ONCE DAILY
     Route: 048
     Dates: start: 201203, end: 201305
  2. LANOXIN [Concomitant]
     Indication: ATRIAL FIBRILLATION
     Dosage: DAILY DOSE 0.125 MG
  3. OMEPRAZOLE [Concomitant]
     Indication: PROPHYLAXIS AGAINST GASTROINTESTINAL ULCER
     Dosage: 40 MG, QD
  4. RAMIPRIL [Concomitant]
     Indication: DIABETES PROPHYLAXIS
     Dosage: 5 MG, ONCE DAILY
  5. DEXAMETHASONE [Concomitant]
     Indication: PALLIATIVE CARE
     Dosage: 4 MG, BID
     Dates: start: 201305
  6. GLICLAZIDE [Concomitant]
     Dosage: 120 MG, QD
     Dates: end: 201305

REACTIONS (1)
  - Pancreatic carcinoma [Fatal]
